FAERS Safety Report 6978861-1 (Version None)
Quarter: 2010Q3

REPORT INFORMATION
  Report Type: 
  Country: None (occurrence: None)
  Receive Date: 20100908
  Receipt Date: 20100827
  Transmission Date: 20110219
  Serious: Yes (Other)
  Sender: FDA-Public Use
  Company Number: 2010US003528

PATIENT
  Age: 52 Year
  Sex: Female

DRUGS (11)
  1. PROGRAF [Suspect]
     Indication: RENAL TRANSPLANT
  2. BASILIXIMAB (BASILIXIMAB) [Suspect]
     Indication: RENAL TRANSPLANT
  3. CORTICOSTEROID NOS (CORTICOSTEROID NOS) [Suspect]
     Indication: RENAL TRANSPLANT
  4. MYCOPHENOLATE MOFETIL [Suspect]
     Indication: RENAL TRANSPLANT
     Dosage: 500 MG, BID
  5. SIROLIMUS (RAPAMUNE) [Suspect]
     Indication: RENAL TRANSPLANT
  6. VALGANCICLOVIR HCL [Concomitant]
  7. TRIMETHOPRIM + SULFAMETHOXAZOLE [Concomitant]
  8. METOPROLOL SUCCINATE [Concomitant]
  9. HYDRALAZINE HCL [Concomitant]
  10. FAMOTIDINE [Concomitant]
  11. SIMVASTATIN [Concomitant]

REACTIONS (7)
  - BLOOD PARATHYROID HORMONE INCREASED [None]
  - BONE MARROW OEDEMA [None]
  - FOOT FRACTURE [None]
  - PAIN IN EXTREMITY [None]
  - PERIARTICULAR DISORDER [None]
  - SOFT TISSUE DISORDER [None]
  - STRESS FRACTURE [None]
